FAERS Safety Report 6427719-5 (Version None)
Quarter: 2009Q4

REPORT INFORMATION
  Report Type: 
  Country: None (occurrence: None)
  Receive Date: 20091105
  Receipt Date: 20091029
  Transmission Date: 20100525
  Serious: Yes (Death, Hospitalization)
  Sender: FDA-Public Use
  Company Number: US-BIOGENIDEC-2009BI029201

PATIENT
  Age: 71 Year
  Sex: Female

DRUGS (3)
  1. AVONEX [Suspect]
     Indication: MULTIPLE SCLEROSIS
     Route: 030
     Dates: start: 19990701
  2. NOVANTRONE [Concomitant]
     Indication: MULTIPLE SCLEROSIS
     Dates: end: 20020101
  3. ZANAFLEX [Concomitant]

REACTIONS (10)
  - BALANCE DISORDER [None]
  - DYSPHONIA [None]
  - EJECTION FRACTION DECREASED [None]
  - FALL [None]
  - GAIT DISTURBANCE [None]
  - LUMBAR SPINAL STENOSIS [None]
  - MUSCULOSKELETAL STIFFNESS [None]
  - SEPSIS [None]
  - SPINAL COMPRESSION FRACTURE [None]
  - TREMOR [None]
